FAERS Safety Report 21932062 (Version 1)
Quarter: 2023Q1

REPORT INFORMATION
  Report Type: Spontaneous
  Country: US (occurrence: US)
  Receive Date: 20230131
  Receipt Date: 20230131
  Transmission Date: 20230417
  Serious: No
  Sender: FDA-Public Use
  Company Number: US-BRISTOL-MYERS SQUIBB COMPANY-2023-014284

PATIENT
  Age: 68 Year
  Sex: Female
  Weight: 73.94 kg

DRUGS (12)
  1. REVLIMID [Suspect]
     Active Substance: LENALIDOMIDE
     Indication: Follicular lymphoma
     Dosage: FREQUENCY: 1X21 DAYS
     Route: 048
     Dates: start: 20221003
  2. REVLIMID [Suspect]
     Active Substance: LENALIDOMIDE
     Dosage: FREQUENCY: 1X21 DAYS
     Route: 048
     Dates: start: 20230125
  3. REVLIMID [Suspect]
     Active Substance: LENALIDOMIDE
     Dosage: FREQUENCY: 1X21 DAYS
     Route: 048
     Dates: start: 20221220, end: 20230127
  4. Acyclovir oral Tablet 400 MG 400 MG [Concomitant]
     Indication: Product used for unknown indication
     Route: 048
     Dates: start: 20220915
  5. Allopurinol oral Tablet 300 MG [Concomitant]
     Indication: Product used for unknown indication
     Route: 048
     Dates: start: 20220915
  6. Bactrim oral Tablet 400-80 MG 400-80 MG [Concomitant]
     Indication: Product used for unknown indication
     Dosage: BACTRIM ORAL TABLET 400-80 MG 400-80 MG
     Route: 048
     Dates: start: 20220930
  7. Bayer Aspirin EC Low Dose Oral Tabl [Concomitant]
     Indication: Product used for unknown indication
     Route: 048
     Dates: start: 20220930
  8. GLIMEPIRIDE [Concomitant]
     Active Substance: GLIMEPIRIDE
     Indication: Product used for unknown indication
     Route: 048
     Dates: start: 20220916
  9. GLIMEPIRIDE [Concomitant]
     Active Substance: GLIMEPIRIDE
     Route: 048
     Dates: start: 20220916
  10. Januvia oral Tablet 100 MG [Concomitant]
     Indication: Product used for unknown indication
     Route: 048
     Dates: start: 20220916
  11. Nitrofurantoin Monohyd Macro Oral C [Concomitant]
     Indication: Product used for unknown indication
     Route: 048
     Dates: start: 20220916
  12. Rosuvastatin Calcium Oral Tablet 10 [Concomitant]
     Indication: Product used for unknown indication
     Route: 048
     Dates: start: 20220916

REACTIONS (1)
  - Platelet count decreased [Recovering/Resolving]
